FAERS Safety Report 7739412-7 (Version None)
Quarter: 2011Q3

REPORT INFORMATION
  Report Type: 
  Country: None (occurrence: None)
  Receive Date: 20110909
  Receipt Date: 20110826
  Transmission Date: 20111222
  Serious: Yes (Other)
  Sender: FDA-Public Use
  Company Number: CA-JNJFOC-20110900858

PATIENT
  Sex: Male

DRUGS (1)
  1. LISTERINE ORIGINAL MOUTHWASH [Suspect]
     Indication: POISONING
     Route: 048

REACTIONS (3)
  - DRUG ABUSE [None]
  - INCORRECT ROUTE OF DRUG ADMINISTRATION [None]
  - CONVULSION [None]
